FAERS Safety Report 5213185-4 (Version None)
Quarter: 2007Q1

REPORT INFORMATION
  Report Type: 
  Country: None (occurrence: None)
  Receive Date: 20070119
  Receipt Date: 20061221
  Transmission Date: 20070707
  Serious: Yes (Hospitalization)
  Sender: FDA-Public Use
  Company Number: 2006JP004391

PATIENT
  Age: 76 Year
  Sex: Female

DRUGS (9)
  1. CEFAZOLIN [Suspect]
     Indication: POST PROCEDURAL INFECTION
     Dosage: 1G TWICE PER DAY
     Route: 042
     Dates: start: 20041027, end: 20041031
  2. VOLTAREN [Suspect]
     Dosage: 25MG SEE DOSAGE TEXT
     Route: 054
     Dates: start: 20041024, end: 20041030
  3. SOLETON [Concomitant]
     Dates: start: 20041025, end: 20041103
  4. SELBEX [Concomitant]
     Route: 048
     Dates: start: 20041025, end: 20041103
  5. CEFZON [Concomitant]
     Dates: start: 20041101, end: 20041107
  6. POTACOL-R [Concomitant]
     Dates: start: 20041027, end: 20041101
  7. ATROPINE SULPHATE [Concomitant]
     Dates: start: 20041027, end: 20041027
  8. DORMICUM [Concomitant]
     Dates: start: 20041027, end: 20041027
  9. KN SOLUTION 1B [Concomitant]
     Dates: start: 20041027, end: 20041101

REACTIONS (9)
  - COLONIC POLYP [None]
  - DIARRHOEA [None]
  - ENTEROCOLITIS [None]
  - FAECAL INCONTINENCE [None]
  - HAEMATOCHEZIA [None]
  - MELAENA [None]
  - RECTAL HAEMORRHAGE [None]
  - RECTAL PROLAPSE [None]
  - RECTAL ULCER [None]
